FAERS Safety Report 4384465-X (Version None)
Quarter: 2004Q2

REPORT INFORMATION
  Report Type: 
  Country: None (occurrence: None)
  Receive Date: 20040607
  Receipt Date: 20031106
  Transmission Date: 20050107
  Serious: Yes (Other)
  Sender: FDA-Public Use
  Company Number: 348914

PATIENT

DRUGS (2)
  1. ACCUTANE [Suspect]
     Indication: ACNE CYSTIC
     Dosage: 60 MG DAILY ORAL
     Route: 048
     Dates: start: 20030506, end: 20030923
  2. UNKNOWN MEDICATION (GENERIC COMPONENT(S) UNKNOWN) [Concomitant]

REACTIONS (1)
  - ABORTION INDUCED [None]
